FAERS Safety Report 5243432-4 (Version None)
Quarter: 2007Q1

REPORT INFORMATION
  Report Type: 
  Country: None (occurrence: None)
  Receive Date: 20070214
  Receipt Date: 20070129
  Transmission Date: 20070707
  Serious: Yes (Other)
  Sender: FDA-Public Use
  Company Number: 805#1#2007-00001

PATIENT
  Age: 55 Year
  Sex: Male

DRUGS (4)
  1. ALPROSTADIL [Suspect]
     Indication: ARTERIOSCLEROSIS OBLITERANS
     Dosage: 120 MCG (120 MCG 1 IN 1 DAY (S))
     Route: 041
     Dates: start: 20061229, end: 20070104
  2. SARPOGRELATE HYDROCHLORIDE [Concomitant]
  3. KIDMIN (AMINO ACIDS NOS) [Concomitant]
  4. CEFOTIAM HYDROCHLORIDE [Concomitant]

REACTIONS (4)
  - ALANINE AMINOTRANSFERASE INCREASED [None]
  - ASPARTATE AMINOTRANSFERASE INCREASED [None]
  - HEPATIC FUNCTION ABNORMAL [None]
  - LIVER DISORDER [None]
